FAERS Safety Report 12642791 (Version 1)
Quarter: 2016Q3

REPORT INFORMATION
  Report Type: Spontaneous
  Country: US (occurrence: US)
  Receive Date: 20160811
  Receipt Date: 20160811
  Transmission Date: 20161109
  Serious: No
  Sender: FDA-Public Use
  Company Number: US-JNJFOC-20160701450

PATIENT
  Age: 72 Year
  Sex: Female
  Weight: 55.79 kg

DRUGS (5)
  1. LEVOTHYROXINE. [Concomitant]
     Active Substance: LEVOTHYROXINE
     Indication: THYROID DISORDER
     Dosage: 2 YEARS
     Route: 065
  2. MULTIVITAMINS [Concomitant]
     Active Substance: VITAMINS
     Indication: NUTRITIONAL SUPPLEMENTATION
     Dosage: YEARS
     Route: 065
  3. PEPCID AC [Suspect]
     Active Substance: FAMOTIDINE
     Route: 048
  4. PEPCID AC [Suspect]
     Active Substance: FAMOTIDINE
     Indication: DYSPEPSIA
     Dosage: 30 MINUTES BEFORE EATING
     Route: 048
     Dates: start: 20160626
  5. MICROLAX [Concomitant]
     Indication: LAXATIVE SUPPORTIVE CARE
     Dosage: AT NIGHT 1 1/2 YEARS
     Route: 065

REACTIONS (3)
  - Initial insomnia [Not Recovered/Not Resolved]
  - Drug ineffective [Unknown]
  - Dry mouth [Not Recovered/Not Resolved]

NARRATIVE: CASE EVENT DATE: 20160629
